FAERS Safety Report 7477599-4 (Version None)
Quarter: 2011Q2

REPORT INFORMATION
  Report Type: 
  Country: None (occurrence: None)
  Receive Date: 20110511
  Receipt Date: 20110511
  Transmission Date: 20111010
  Serious: Yes (Other)
  Sender: FDA-Public Use
  Company Number: None

PATIENT
  Age: 46 Year
  Sex: Female
  Weight: 117.9352 kg

DRUGS (1)
  1. TOPIRAMATE [Suspect]
     Indication: DEPRESSION
     Dosage: 1 TABLET EVERY NIGHT AT BEDTIME DENTAL
     Route: 004
     Dates: start: 20110504, end: 20110509

REACTIONS (1)
  - NAUSEA [None]
